FAERS Safety Report 8081410-0 (Version None)
Quarter: 2012Q1

REPORT INFORMATION
  Report Type: 
  Country: None (occurrence: None)
  Receive Date: 20120130
  Receipt Date: 20120118
  Transmission Date: 20120608
  Serious: Yes (Life-Threatening, Hospitalization, Other)
  Sender: FDA-Public Use
  Company Number: NL-MEDIMMUNE-MEDI-0014163

PATIENT
  Sex: Male
  Weight: 5.12 kg

DRUGS (1)
  1. SYNAGIS [Suspect]
     Indication: PREMATURE BABY
     Route: 030
     Dates: start: 20110923, end: 20111114

REACTIONS (4)
  - SHUNT OCCLUSION [None]
  - CEREBRAL VENTRICLE DILATATION [None]
  - INTRAVENTRICULAR HAEMORRHAGE NEONATAL [None]
  - ULTRASOUND SCAN ABNORMAL [None]
